FAERS Safety Report 5484108-8 (Version None)
Quarter: 2007Q4

REPORT INFORMATION
  Report Type: 
  Country: None (occurrence: None)
  Receive Date: 20071012
  Receipt Date: 20071002
  Transmission Date: 20080405
  Serious: Yes (Disabling, Other)
  Sender: FDA-Public Use
  Company Number: BE-SHR-BE-2007-037694

PATIENT
  Age: 57 Year
  Sex: Female

DRUGS (1)
  1. CAMPATH [Suspect]
     Dosage: 30 MG, UNK
     Route: 042
     Dates: start: 20070528, end: 20070813

REACTIONS (1)
  - OPTIC NERVE NEOPLASM [None]
